FAERS Safety Report 6266267-2 (Version None)
Quarter: 2009Q3

REPORT INFORMATION
  Report Type: 
  Country: None (occurrence: None)
  Receive Date: 20090713
  Receipt Date: 20090708
  Transmission Date: 20100115
  Serious: Yes (Life-Threatening, Hospitalization, Other)
  Sender: FDA-Public Use
  Company Number: CA-WYE-H10016509

PATIENT
  Sex: Male
  Weight: 103.2 kg

DRUGS (4)
  1. SORAFENIB [Suspect]
     Indication: RENAL CELL CARCINOMA
     Route: 048
     Dates: start: 20090616, end: 20090629
  2. ZOPICLONE [Concomitant]
     Dosage: NOT PROVIDED
     Route: 065
     Dates: start: 20090614
  3. MEROPENEM [Concomitant]
     Indication: SEPSIS
     Dosage: NOT PROVIDED
     Route: 065
     Dates: start: 20090630, end: 20090703
  4. HEPARIN-FRACTION, CALCIUM SALT [Concomitant]
     Indication: DEEP VEIN THROMBOSIS
     Dosage: 1700 UNIT EVERY 1 DAY
     Route: 065
     Dates: start: 20090611

REACTIONS (4)
  - ATRIAL FIBRILLATION [None]
  - CONFUSIONAL STATE [None]
  - PYREXIA [None]
  - SYSTEMIC INFLAMMATORY RESPONSE SYNDROME [None]
